FAERS Safety Report 17083403 (Version 3)
Quarter: 2019Q4

REPORT INFORMATION
  Report Type: Spontaneous
  Country: US (occurrence: US)
  Receive Date: 20191127
  Receipt Date: 20191219
  Transmission Date: 20200122
  Serious: No
  Sender: FDA-Public Use
  Company Number: US-SA-2019SA321668

PATIENT
  Age: 57 Year
  Sex: Female

DRUGS (3)
  1. PRALUENT [Suspect]
     Active Substance: ALIROCUMAB
     Indication: BLOOD CHOLESTEROL ABNORMAL
  2. PRALUENT [Suspect]
     Active Substance: ALIROCUMAB
     Indication: OSTEOARTHRITIS
  3. PRALUENT [Suspect]
     Active Substance: ALIROCUMAB
     Indication: UNEVALUABLE EVENT
     Dosage: 75 MG, QOW
     Route: 058
     Dates: start: 201910

REACTIONS (4)
  - Product use in unapproved indication [Unknown]
  - Injection site pruritus [Recovered/Resolved]
  - Wrong technique in device usage process [Unknown]
  - Incorrect dose administered by device [Unknown]

NARRATIVE: CASE EVENT DATE: 20191114
